FAERS Safety Report 5929090-1 (Version None)
Quarter: 2008Q4

REPORT INFORMATION
  Report Type: 
  Country: None (occurrence: None)
  Receive Date: 20081024
  Receipt Date: 20081016
  Transmission Date: 20090506
  Serious: Yes (Hospitalization, Other)
  Sender: FDA-Public Use
  Company Number: US-AMGEN-QUU304943

PATIENT
  Sex: Female
  Weight: 67.6 kg

DRUGS (5)
  1. ENBREL [Suspect]
     Indication: RHEUMATOID ARTHRITIS
     Route: 058
     Dates: start: 20080401
  2. MYSOLINE [Suspect]
  3. METHOTREXATE [Concomitant]
     Dates: start: 20060401
  4. PLAQUENIL [Concomitant]
     Dates: start: 20070401
  5. TOPAMAX [Concomitant]

REACTIONS (2)
  - CONVULSION [None]
  - DRUG LEVEL BELOW THERAPEUTIC [None]
